FAERS Safety Report 7778942-9 (Version None)
Quarter: 2011Q3

REPORT INFORMATION
  Report Type: 
  Country: None (occurrence: None)
  Receive Date: 20110926
  Receipt Date: 20110920
  Transmission Date: 20111222
  Serious: Yes (Other)
  Sender: FDA-Public Use
  Company Number: DE-ABBOTT-10P-062-0656181-00

PATIENT
  Age: 20 Year
  Sex: Female

DRUGS (9)
  1. METHOTREXATE [Suspect]
     Indication: JUVENILE ARTHRITIS
  2. INDOMETHACIN [Concomitant]
     Indication: PRODUCT USED FOR UNKNOWN INDICATION
  3. PREDNISOLONE [Concomitant]
     Indication: PRODUCT USED FOR UNKNOWN INDICATION
  4. HYDROXYCHLOROQUINE SULFATE [Concomitant]
     Indication: PRODUCT USED FOR UNKNOWN INDICATION
  5. ETANERCEPT [Suspect]
     Indication: JUVENILE ARTHRITIS
  6. DICLOFENAC [Concomitant]
     Indication: PRODUCT USED FOR UNKNOWN INDICATION
  7. ADALIMUMAB [Suspect]
     Indication: JUVENILE ARTHRITIS
  8. INFLIXIMAB [Suspect]
     Indication: JUVENILE ARTHRITIS
  9. LEFLUNOMIDE [Suspect]
     Indication: JUVENILE ARTHRITIS

REACTIONS (1)
  - CERVICAL DYSPLASIA [None]
